FAERS Safety Report 16143139 (Version 2)
Quarter: 2019Q2

REPORT INFORMATION
  Report Type: Report from Study
  Country: US (occurrence: US)
  Receive Date: 20190401
  Receipt Date: 20190408
  Transmission Date: 20190711
  Serious: Yes (Hospitalization, Other)
  Sender: FDA-Public Use
  Company Number: US-JAZZ-2018-US-004296

PATIENT
  Sex: Female

DRUGS (10)
  1. PROZAC [Concomitant]
     Active Substance: FLUOXETINE HYDROCHLORIDE
  2. LUVOX [Concomitant]
     Active Substance: FLUVOXAMINE MALEATE
  3. ARMOUR THYROID [Concomitant]
     Active Substance: THYROID, PORCINE
  4. DEPLIN [Concomitant]
     Active Substance: LEVOMEFOLATE CALCIUM
  5. FETZIMA [Concomitant]
     Active Substance: LEVOMILNACIPRAN HYDROCHLORIDE
  6. XYREM [Suspect]
     Active Substance: SODIUM OXYBATE
     Dosage: 3.5 G, BID
     Route: 048
     Dates: start: 201706
  7. XYREM [Suspect]
     Active Substance: SODIUM OXYBATE
     Indication: NARCOLEPSY
     Dosage: 3 G, BID
     Route: 048
     Dates: start: 201407, end: 201407
  8. XYREM [Suspect]
     Active Substance: SODIUM OXYBATE
     Indication: CATAPLEXY
     Dosage: DOSE ADJUSTMENT
     Route: 048
     Dates: start: 201407, end: 201706
  9. FERROUS SULFATE. [Concomitant]
     Active Substance: FERROUS SULFATE
  10. BUSPIRONE HCL [Concomitant]
     Active Substance: BUSPIRONE HYDROCHLORIDE

REACTIONS (9)
  - Obsessive-compulsive disorder [Unknown]
  - Menorrhagia [Recovered/Resolved]
  - Feeling abnormal [Unknown]
  - Delusional disorder, unspecified type [Unknown]
  - Anxiety [Recovering/Resolving]
  - Suicidal ideation [Recovered/Resolved]
  - Depression [Unknown]
  - Panic attack [Unknown]
  - Anaemia [Recovering/Resolving]
